FAERS Safety Report 21789845 (Version 2)
Quarter: 2023Q1

REPORT INFORMATION
  Report Type: Other
  Country: PL (occurrence: None)
  Receive Date: 20221228
  Receipt Date: 20230206
  Transmission Date: 20230418
  Serious: Yes (Other)
  Sender: FDA-Public Use
  Company Number: PL-ROCHE-3250552

PATIENT
  Sex: Female

DRUGS (1)
  1. SATRALIZUMAB [Suspect]
     Active Substance: SATRALIZUMAB
     Indication: Product used for unknown indication
     Route: 065
     Dates: start: 20210823

REACTIONS (4)
  - Subdural abscess [Recovered/Resolved]
  - Neuromyelitis optica spectrum disorder [Recovered/Resolved]
  - Monoparesis [Recovered/Resolved]
  - Sensory disturbance [Recovered/Resolved]
